FAERS Safety Report 8439518-3 (Version None)
Quarter: 2012Q2

REPORT INFORMATION
  Report Type: 
  Country: None (occurrence: None)
  Receive Date: 20120615
  Receipt Date: 20120611
  Transmission Date: 20120825
  Serious: Yes (Hospitalization)
  Sender: FDA-Public Use
  Company Number: FR-PFIZER INC-2012139492

PATIENT
  Age: 89 Year

DRUGS (7)
  1. PERMIXON [Concomitant]
     Dosage: UNK
     Route: 048
  2. FUROSEMIDE [Concomitant]
     Dosage: 60 MG, 1X/DAY
     Route: 048
  3. PERINDOPRIL ERBUMINE [Concomitant]
     Dosage: 4 MG, 2X/DAY
     Route: 048
  4. ATORVASTATIN [Suspect]
     Dosage: 10 MG, 1X/DAY
     Route: 048
     Dates: start: 20120201, end: 20120419
  5. BISOPROLOL FUMARATE [Concomitant]
     Dosage: 10 MG, 1X/DAY
     Route: 048
  6. OMEPRAZOLE [Suspect]
     Dosage: 1 DF, 1X/DAY
     Route: 048
     Dates: end: 20120419
  7. ASPIRIN [Concomitant]
     Dosage: 75 MG, 1X/DAY
     Route: 048

REACTIONS (1)
  - DRUG RASH WITH EOSINOPHILIA AND SYSTEMIC SYMPTOMS [None]
